FAERS Safety Report 16171287 (Version 2)
Quarter: 2019Q2

REPORT INFORMATION
  Report Type: Spontaneous
  Country: US (occurrence: US)
  Receive Date: 20190408
  Receipt Date: 20190412
  Transmission Date: 20190711
  Serious: Yes (Life-Threatening, Hospitalization, Other)
  Sender: FDA-Public Use
  Company Number: US-PFIZER INC-2019151511

PATIENT
  Age: 64 Year
  Sex: Female

DRUGS (1)
  1. DOXYCYCLINE HYCLATE. [Suspect]
     Active Substance: DOXYCYCLINE HYCLATE
     Indication: RELAPSING FEVER
     Dosage: 100 MG, 2X/DAY (FIRST DOSE)
     Route: 048

REACTIONS (3)
  - Hypotension [Recovered/Resolved]
  - Jarisch-Herxheimer reaction [Recovered/Resolved]
  - Hypoxia [Recovered/Resolved]
